FAERS Safety Report 5008190-7 (Version None)
Quarter: 2006Q2

REPORT INFORMATION
  Report Type: 
  Country: None (occurrence: None)
  Receive Date: 20060522
  Receipt Date: 20060119
  Transmission Date: 20061013
  Serious: Yes (Hospitalization)
  Sender: FDA-Public Use
  Company Number: FR-MERCK-0601FRA00069

PATIENT
  Age: 42 Year
  Sex: Female
  Weight: 56 kg

DRUGS (12)
  1. CANCIDAS [Suspect]
     Route: 042
     Dates: start: 20051125, end: 20051211
  2. CANCIDAS [Suspect]
     Route: 042
     Dates: start: 20060101
  3. HYDROXYZINE HYDROCHLORIDE [Suspect]
     Route: 048
     Dates: start: 20051122, end: 20051206
  4. CEFTAZIDIME [Suspect]
     Route: 042
     Dates: start: 20051128, end: 20051213
  5. TEICOPLANIN [Suspect]
     Route: 042
     Dates: start: 20051128, end: 20051213
  6. MYCOPHENOLATE MOFETIL [Suspect]
     Route: 042
     Dates: start: 20051124, end: 20051127
  7. MYCOPHENOLATE MOFETIL [Suspect]
     Route: 042
     Dates: start: 20051128, end: 20051205
  8. MYCOPHENOLATE MOFETIL [Suspect]
     Route: 042
     Dates: start: 20051206, end: 20051213
  9. DESLORATADINE [Suspect]
     Route: 048
     Dates: start: 20051122, end: 20051206
  10. CLONAZEPAM [Concomitant]
     Route: 048
     Dates: start: 20051207, end: 20051213
  11. VALACYCLOVIR HYDROCHLORIDE [Concomitant]
     Route: 048
     Dates: start: 20051208, end: 20051214
  12. INSULIN [Concomitant]
     Route: 051

REACTIONS (3)
  - HEPATIC NEOPLASM [None]
  - HEPATITIS [None]
  - RASH [None]
